FAERS Safety Report 20356060 (Version 2)
Quarter: 2022Q1

REPORT INFORMATION
  Report Type: Spontaneous
  Country: JP (occurrence: JP)
  Receive Date: 20220120
  Receipt Date: 20220125
  Transmission Date: 20220423
  Serious: Yes (Death, Other)
  Sender: FDA-Public Use
  Company Number: JP-CELGENE-JPN-20220104654

PATIENT
  Age: 67 Year
  Sex: Male

DRUGS (5)
  1. VIDAZA [Suspect]
     Active Substance: AZACITIDINE
     Indication: Chronic myelomonocytic leukaemia
     Dosage: 75 MILLIGRAM/SQ. METER
     Route: 041
  2. VIDAZA [Suspect]
     Active Substance: AZACITIDINE
     Indication: Myelodysplastic syndrome
  3. FEIBA [Suspect]
     Active Substance: ANTI-INHIBITOR COAGULANT COMPLEX
     Indication: Chronic myelomonocytic leukaemia
     Route: 041
  4. FEIBA [Suspect]
     Active Substance: ANTI-INHIBITOR COAGULANT COMPLEX
     Indication: Myelodysplastic syndrome
  5. Activated prothrombin complex [Concomitant]
     Indication: Acquired haemophilia
     Route: 065

REACTIONS (3)
  - Gastrointestinal haemorrhage [Fatal]
  - Acute myocardial infarction [Recovering/Resolving]
  - Bone marrow failure [Unknown]

NARRATIVE: CASE EVENT DATE: 20160711
